FAERS Safety Report 9165988 (Version 2)
Quarter: 2013Q1

REPORT INFORMATION
  Report Type: Spontaneous
  Country: CN (occurrence: CN)
  Receive Date: 20130315
  Receipt Date: 20130322
  Transmission Date: 20140127
  Serious: Yes (Other)
  Sender: FDA-Public Use
  Company Number: CN-SANOFI-AVENTIS-2013SA025248

PATIENT
  Age: 66 Year
  Sex: Female

DRUGS (3)
  1. ELOXATIN [Suspect]
     Indication: COLON CANCER
     Route: 041
     Dates: start: 20121120, end: 201212
  2. ELOXATIN [Suspect]
     Indication: COLON CANCER
     Route: 041
     Dates: start: 201301
  3. XELODA [Concomitant]
     Indication: COLON CANCER
     Route: 048
     Dates: start: 20121120

REACTIONS (1)
  - Carcinoembryonic antigen increased [Not Recovered/Not Resolved]
